FAERS Safety Report 19802758 (Version 1)
Quarter: 2021Q3

REPORT INFORMATION
  Report Type: Spontaneous
  Country: BR (occurrence: BR)
  Receive Date: 20210908
  Receipt Date: 20210908
  Transmission Date: 20211014
  Serious: Yes (Life-Threatening, Other)
  Sender: FDA-Public Use
  Company Number: NVSC2021BR191308

PATIENT
  Sex: Male

DRUGS (4)
  1. ONBRIZE [Suspect]
     Active Substance: INDACATEROL MALEATE
     Dosage: 300 UG
     Route: 065
  2. DUOVENT N [Concomitant]
     Active Substance: FENOTEROL HYDROBROMIDE\IPRATROPIUM BROMIDE
     Indication: PRODUCT USED FOR UNKNOWN INDICATION
     Dosage: UNK, 30 YEARS AGO
     Route: 065
  3. ONBRIZE [Suspect]
     Active Substance: INDACATEROL MALEATE
     Indication: ASTHMA
     Dosage: UNK, 2 YEARS AGO
     Route: 065
  4. ONBRIZE [Suspect]
     Active Substance: INDACATEROL MALEATE
     Dosage: 150 UG, MORE THAN 3 YEARS
     Route: 065

REACTIONS (14)
  - Emphysema [Unknown]
  - Labyrinthitis [Unknown]
  - Dyspnoea [Not Recovered/Not Resolved]
  - Cough [Not Recovered/Not Resolved]
  - Throat clearing [Recovered/Resolved]
  - Illness [Unknown]
  - Glucose tolerance impaired [Not Recovered/Not Resolved]
  - Drug dependence [Unknown]
  - Feeling abnormal [Unknown]
  - Neoplasm malignant [Unknown]
  - COVID-19 [Unknown]
  - Asthma [Unknown]
  - Hypertension [Unknown]
  - Malaise [Unknown]
